FAERS Safety Report 8511962-5 (Version None)
Quarter: 2012Q3

REPORT INFORMATION
  Report Type: 
  Country: None (occurrence: None)
  Receive Date: 20120716
  Receipt Date: 20120706
  Transmission Date: 20120928
  Serious: Yes (Other)
  Sender: FDA-Public Use
  Company Number: US-PFIZER INC-2012156183

PATIENT
  Sex: Female
  Weight: 61.22 kg

DRUGS (2)
  1. LYRICA [Suspect]
     Indication: NEUROPATHY PERIPHERAL
     Dosage: 150 MG, 3X/DAY
     Route: 048
     Dates: end: 20120101
  2. LYRICA [Suspect]
     Dosage: 150 MG, 2X/DAY
     Route: 048
     Dates: start: 20120101

REACTIONS (7)
  - EYE DISORDER [None]
  - BREAST DISCOMFORT [None]
  - BREAST PAIN [None]
  - PANIC ATTACK [None]
  - CONDITION AGGRAVATED [None]
  - PARALYSIS [None]
  - DYSPNOEA [None]
